FAERS Safety Report 9293921 (Version 1)
Quarter: 2013Q1

REPORT INFORMATION
  Report Type: Spontaneous
  Country: US (occurrence: None)
  Receive Date: 20121214
  Receipt Date: 20121214
  Transmission Date: 20140127
  Serious: Yes (Hospitalization)
  Sender: FDA-Public Use
  Company Number: 1209USA009912

PATIENT
  Sex: Male

DRUGS (1)
  1. JANUVIA (SITAGLIPTIN PHOSPHATE) FILMCOATED TABLET, 100MG [Suspect]
     Indication: GLYCOSYLATED HAEMOGLOBIN INCREASED
     Route: 048

REACTIONS (1)
  - Pancreatitis [None]
